FAERS Safety Report 8154881-9 (Version None)
Quarter: 2012Q1

REPORT INFORMATION
  Report Type: 
  Country: None (occurrence: None)
  Receive Date: 20120221
  Receipt Date: 20120214
  Transmission Date: 20120608
  Serious: Yes (Hospitalization, Other)
  Sender: FDA-Public Use
  Company Number: PHFR2011GB006846

PATIENT
  Age: 63 Year
  Sex: Male
  Weight: 79.6 kg

DRUGS (3)
  1. SALMETEROL [Concomitant]
  2. TIOPRONIN [Concomitant]
  3. ONBREZ [Suspect]
     Indication: CHRONIC OBSTRUCTIVE PULMONARY DISEASE
     Dosage: 1 DF, BID
     Dates: start: 20111031, end: 20111031

REACTIONS (2)
  - HYPERSENSITIVITY [None]
  - BRONCHOSPASM [None]
